FAERS Safety Report 14794777 (Version 1)
Quarter: 2018Q2

REPORT INFORMATION
  Report Type: Spontaneous
  Country: US (occurrence: US)
  Receive Date: 20180423
  Receipt Date: 20180423
  Transmission Date: 20180711
  Serious: Yes (Hospitalization, Other)
  Sender: FDA-Public Use
  Company Number: US-ASTELLAS-2018US018548

PATIENT
  Age: 62 Year
  Sex: Female

DRUGS (2)
  1. CEFEPIME [Suspect]
     Active Substance: CEFEPIME HYDROCHLORIDE
     Indication: PNEUMONIA
     Dosage: UNK UNK, UNKNOWN FREQ.
     Route: 065
  2. TACROLIMUS. [Suspect]
     Active Substance: TACROLIMUS
     Indication: RENAL TRANSPLANT
     Dosage: UNK UNK, UNKNOWN FREQ.
     Route: 065

REACTIONS (10)
  - Electrocardiogram T wave abnormal [Recovered/Resolved]
  - Agitation [Recovered/Resolved]
  - Blood urea increased [Unknown]
  - Visual impairment [Recovered/Resolved]
  - Toxicity to various agents [Unknown]
  - Mood altered [Recovered/Resolved]
  - Muscle twitching [Recovered/Resolved]
  - Moaning [Recovered/Resolved]
  - Blood creatinine increased [Unknown]
  - Pneumonia [Unknown]
